FAERS Safety Report 5148024-3 (Version None)
Quarter: 2006Q4

REPORT INFORMATION
  Report Type: 
  Country: None (occurrence: None)
  Receive Date: 20061110
  Receipt Date: 20060525
  Transmission Date: 20070319
  Serious: Yes (Hospitalization, Other)
  Sender: FDA-Public Use
  Company Number: 2006061330

PATIENT
  Age: 39 Year
  Sex: Male
  Weight: 55 kg

DRUGS (4)
  1. COMBIVIR [Suspect]
     Indication: HIV INFECTION
     Dosage: 1TAB TWICE PER DAY
     Route: 048
     Dates: start: 20060412
  2. BLINDED TRIAL MEDICATION [Suspect]
     Indication: HIV INFECTION
     Dates: end: 20060429
  3. EFAVIRENZ [Suspect]
     Dosage: 600MG PER DAY
     Dates: start: 20060412, end: 20060426
  4. CO-TRIMOXAZOLE [Concomitant]
     Dates: start: 20060303, end: 20060429

REACTIONS (6)
  - ABDOMINAL PAIN [None]
  - BLOOD SODIUM DECREASED [None]
  - COMA [None]
  - NAUSEA [None]
  - RASH [None]
  - VOMITING [None]
